FAERS Safety Report 5055144-0 (Version None)
Quarter: 2006Q2

REPORT INFORMATION
  Report Type: 
  Country: None (occurrence: None)
  Receive Date: 20060616
  Receipt Date: 20060324
  Transmission Date: 20061013
  Serious: No
  Sender: FDA-Public Use
  Company Number: 223451

PATIENT
  Age: 62 Year
  Sex: Female

DRUGS (2)
  1. AVASTIN [Suspect]
     Indication: OVARIAN CANCER
  2. TOPOTECAN (TOPOTECAN HYDROCHLORIDE) [Concomitant]

REACTIONS (4)
  - BONE PAIN [None]
  - HEADACHE [None]
  - HYPERTENSION [None]
  - NAUSEA [None]
